FAERS Safety Report 25952592 (Version 1)
Quarter: 2025Q4

REPORT INFORMATION
  Report Type: Report from Study
  Country: US (occurrence: US)
  Receive Date: 20251023
  Receipt Date: 20251023
  Transmission Date: 20260117
  Serious: No
  Sender: MALLINCKRODT
  Company Number: US-MALLINCKRODT-MNK202506560

PATIENT
  Age: 50 Year
  Sex: Male

DRUGS (1)
  1. CORTICOTROPIN [Suspect]
     Active Substance: CORTICOTROPIN
     Indication: Sarcoidosis
     Dosage: UNKNOWN

REACTIONS (1)
  - Cough [Not Recovered/Not Resolved]

NARRATIVE: CASE EVENT DATE: 20251020
